FAERS Safety Report 25414065 (Version 1)
Quarter: 2025Q2

REPORT INFORMATION
  Report Type: Spontaneous
  Country: BR (occurrence: BR)
  Receive Date: 20250609
  Receipt Date: 20250609
  Transmission Date: 20250716
  Serious: Yes (Death)
  Sender: ABBVIE
  Company Number: BR-ABBVIE-6319216

PATIENT
  Sex: Female
  Weight: 70 kg

DRUGS (1)
  1. HUMIRA [Suspect]
     Active Substance: ADALIMUMAB
     Indication: Crohn^s disease
     Dosage: AC 40 MG IN 0.4 ML
     Route: 058

REACTIONS (2)
  - Crohn^s disease [Fatal]
  - Pneumonia [Fatal]
